FAERS Safety Report 8075379-2 (Version None)
Quarter: 2012Q1

REPORT INFORMATION
  Report Type: 
  Country: None (occurrence: None)
  Receive Date: 20120127
  Receipt Date: 20120125
  Transmission Date: 20120608
  Serious: Yes (Other)
  Sender: FDA-Public Use
  Company Number: US-BAYER-2012-008208

PATIENT
  Age: 57 Year
  Sex: Female

DRUGS (11)
  1. IMIPRAMINE HCL [Concomitant]
     Dosage: 50 MG, UNK
  2. GABAPENTIN [Concomitant]
     Dosage: 100 MG, UNK
  3. VITAMIN D [Concomitant]
     Dosage: 5000 IU, UNK
  4. ASCORBIC ACID [Concomitant]
     Dosage: 100 MG, UNK
  5. CALCIUM [Concomitant]
     Dosage: 600 TAB
  6. VITAMIN D [Concomitant]
  7. BETASERON [Suspect]
     Indication: PRODUCT USED FOR UNKNOWN INDICATION
     Dosage: .3 MG, UNK
     Route: 058
  8. FOSAMAX [Concomitant]
     Dosage: 10 MG, UNK
  9. NITROFURANTOIN [Concomitant]
     Dosage: 100 MG, UNK
  10. CRAN-MAX [Concomitant]
     Dosage: 500 MG, UNK
  11. ASPIRIN [Concomitant]
     Dosage: 81 MG, UNK

REACTIONS (2)
  - CELLULITIS [None]
  - INJECTION SITE PAIN [None]
